FAERS Safety Report 4422247-0 (Version None)
Quarter: 2004Q3

REPORT INFORMATION
  Report Type: 
  Country: None (occurrence: None)
  Receive Date: 20040810
  Receipt Date: 20040614
  Transmission Date: 20050211
  Serious: Yes (Disabling)
  Sender: FDA-Public Use
  Company Number: US-MERCK-0406USA01481

PATIENT
  Age: 82 Year
  Sex: Female

DRUGS (4)
  1. FOSAMAX [Concomitant]
     Route: 065
  2. PRINIVIL [Concomitant]
     Route: 048
  3. GLUCOPHAGE [Concomitant]
     Route: 065
  4. ZOCOR [Suspect]
     Indication: BLOOD CHOLESTEROL INCREASED
     Route: 048
     Dates: start: 20040501, end: 20040525

REACTIONS (1)
  - PAIN IN EXTREMITY [None]
